FAERS Safety Report 15331996 (Version 1)
Quarter: 2018Q3

REPORT INFORMATION
  Report Type: Report from Study
  Country: US (occurrence: US)
  Receive Date: 20180829
  Receipt Date: 20180829
  Transmission Date: 20181010
  Serious: Yes (Hospitalization)
  Sender: FDA-Public Use
  Company Number: PHHY2018US082506

PATIENT
  Age: 55 Year
  Sex: Female
  Weight: 86.8 kg

DRUGS (2)
  1. FEMARA [Suspect]
     Active Substance: LETROZOLE
     Indication: BREAST CANCER
     Route: 065
  2. ABEMACICLIB [Suspect]
     Active Substance: ABEMACICLIB
     Indication: BREAST CANCER
     Dosage: 50 MG, QD
     Route: 048
     Dates: start: 20180712

REACTIONS (4)
  - Diarrhoea [Recovered/Resolved]
  - Syncope [Recovered/Resolved]
  - Dehydration [Recovered/Resolved]
  - Stomatitis [Recovered/Resolved]
